FAERS Safety Report 8688768 (Version 6)
Quarter: 2013Q1

REPORT INFORMATION
  Report Type: Report from Study
  Country: US (occurrence: US)
  Receive Date: 20120727
  Receipt Date: 20130307
  Transmission Date: 20140127
  Serious: Yes (Hospitalization, Other)
  Sender: FDA-Public Use
  Company Number: US-ABBOTT-12P-163-0959288-00

PATIENT
  Age: 68 None
  Sex: Female
  Weight: 78.09 kg

DRUGS (1)
  1. HUMIRA [Suspect]
     Indication: RHEUMATOID ARTHRITIS
     Route: 058
     Dates: start: 200906

REACTIONS (5)
  - Intervertebral disc protrusion [Recovering/Resolving]
  - Spinal operation [Recovering/Resolving]
  - Pneumonia [Unknown]
  - Fatigue [Recovering/Resolving]
  - Nerve compression [Recovering/Resolving]
